FAERS Safety Report 11924919 (Version 1)
Quarter: 2016Q1

REPORT INFORMATION
  Report Type: Report from Study
  Country: US (occurrence: US)
  Receive Date: 20160118
  Receipt Date: 20160118
  Transmission Date: 20160526
  Serious: Yes (Hospitalization, Other)
  Sender: FDA-Public Use
  Company Number: US-BIOGEN-2016BI00170038

PATIENT
  Sex: Male

DRUGS (2)
  1. TYSABRI [Interacting]
     Active Substance: NATALIZUMAB
     Route: 065
     Dates: start: 20130926
  2. TYSABRI [Suspect]
     Active Substance: NATALIZUMAB
     Indication: MULTIPLE SCLEROSIS
     Route: 042
     Dates: start: 20130221, end: 20130516

REACTIONS (7)
  - Back pain [Not Recovered/Not Resolved]
  - Aphasia [Recovered/Resolved]
  - Seizure [Unknown]
  - Blindness [Recovered/Resolved]
  - Urinary tract infection [Recovered/Resolved]
  - Epilepsy [Recovered/Resolved]
  - Multiple sclerosis relapse [Unknown]
